FAERS Safety Report 17291540 (Version 1)
Quarter: 2020Q1

REPORT INFORMATION
  Report Type: Report from Study
  Country: BR (occurrence: BR)
  Receive Date: 20200121
  Receipt Date: 20200121
  Transmission Date: 20200409
  Serious: Yes (Other)
  Sender: FDA-Public Use
  Company Number: BR-BAYER-2019-166215

PATIENT
  Age: 56 Year
  Sex: Male

DRUGS (10)
  1. TRAZODONE [Concomitant]
     Active Substance: TRAZODONE HYDROCHLORIDE
     Indication: INSOMNIA
  2. TRAZODONE [Concomitant]
     Active Substance: TRAZODONE HYDROCHLORIDE
     Indication: ANXIETY
     Dosage: UNK
     Dates: start: 201908, end: 201910
  3. BEPANTOL DERMA CREME [Suspect]
     Active Substance: DEXPANTHENOL
  4. ROHYDORM [Concomitant]
     Active Substance: FLUNITRAZEPAM
     Indication: ANXIETY
     Dosage: 1 DF, QD
  5. GLIFAGE [Concomitant]
     Active Substance: METFORMIN HYDROCHLORIDE
     Indication: GLUCOSE TOLERANCE IMPAIRED
     Dosage: 2 DF, QD
  6. ZOLPIDEM [Concomitant]
     Active Substance: ZOLPIDEM TARTRATE
     Indication: INSOMNIA
     Dosage: UNK
  7. NEXAVAR [Suspect]
     Active Substance: SORAFENIB
     Indication: HEPATOCELLULAR CARCINOMA
     Dosage: 4 DF, QD
     Route: 048
     Dates: start: 20190802
  8. PANTOPRAZOL [PANTOPRAZOLE] [Concomitant]
     Active Substance: PANTOPRAZOLE
     Dosage: UNK, PRN
  9. ZOLPIDEM [Concomitant]
     Active Substance: ZOLPIDEM TARTRATE
     Indication: ANXIETY
  10. ROHYDORM [Concomitant]
     Active Substance: FLUNITRAZEPAM
     Indication: INSOMNIA

REACTIONS (19)
  - Memory impairment [Not Recovered/Not Resolved]
  - Mouth haemorrhage [Not Recovered/Not Resolved]
  - Skin exfoliation [None]
  - Hypertension [Recovering/Resolving]
  - Flatulence [Not Recovered/Not Resolved]
  - Hyperkeratosis [None]
  - Drug ineffective for unapproved indication [None]
  - Folliculitis [Recovered/Resolved]
  - Abdominal pain [None]
  - Hyperaesthesia [None]
  - Sexual dysfunction [None]
  - Epistaxis [Not Recovered/Not Resolved]
  - Scratch [None]
  - Diarrhoea [Not Recovered/Not Resolved]
  - Dry skin [None]
  - Pain in extremity [Not Recovered/Not Resolved]
  - Limb discomfort [None]
  - Vomiting [Not Recovered/Not Resolved]
  - Unevaluable event [Not Recovered/Not Resolved]

NARRATIVE: CASE EVENT DATE: 201908
